FAERS Safety Report 25902727 (Version 1)
Quarter: 2025Q4

REPORT INFORMATION
  Report Type: Spontaneous
  Country: EU (occurrence: EU)
  Receive Date: 20251009
  Receipt Date: 20251009
  Transmission Date: 20260117
  Serious: Yes (Hospitalization)
  Sender: MYLAN
  Company Number: EU-CHEPLA-2025011147

PATIENT
  Age: 84 Year
  Sex: Male

DRUGS (7)
  1. PACLITAXEL [Suspect]
     Active Substance: PACLITAXEL
     Indication: Product used for unknown indication
     Dosage: 175 MILLIGRAM/SQ. METER, DT 200 MG, C1 THERAPY
  2. PACLITAXEL [Suspect]
     Active Substance: PACLITAXEL
     Dosage: 175 MILLIGRAM/SQ. METER, DT 200 MG, C2 THERAPY
  3. CARBOPLATIN [Suspect]
     Active Substance: CARBOPLATIN
     Indication: Product used for unknown indication
     Dosage: AUC4 (DT 300 MG), C1 THERAPY
  4. CARBOPLATIN [Suspect]
     Active Substance: CARBOPLATIN
     Dosage: AUC4 (DT 300 MG), C2 THERAPY
  5. NELVUTAMIG [Suspect]
     Active Substance: NELVUTAMIG
     Indication: Product used for unknown indication
     Dosage: 1 MILLIGRAM/KILOGRAM, DT 60MG, C1 THERAPY
  6. NIVOLUMAB [Suspect]
     Active Substance: NIVOLUMAB
     Indication: Product used for unknown indication
     Dosage: 360 MILLIGRAM, C1 THERAPY
  7. NIVOLUMAB [Suspect]
     Active Substance: NIVOLUMAB
     Dosage: 360 MILLIGRAM, C2 THERAPY

REACTIONS (1)
  - Hyponatraemia [Recovered/Resolved]

NARRATIVE: CASE EVENT DATE: 20250912
